FAERS Safety Report 8819720 (Version 2)
Quarter: 2012Q4

REPORT INFORMATION
  Report Type: 
  Country: US (occurrence: US)
  Receive Date: 20121001
  Receipt Date: 20121011
  Transmission Date: 20130627
  Serious: Yes (Death)
  Sender: FDA-Public Use
  Company Number: US-GILEAD-2012-0061809

PATIENT
  Sex: Male

DRUGS (16)
  1. LETAIRIS [Suspect]
     Indication: PULMONARY ARTERIAL HYPERTENSION
     Dosage: 10 mg, QD
     Route: 048
     Dates: start: 20120823, end: 201209
  2. TRAMADOL [Concomitant]
  3. METHOCARBAMOL [Concomitant]
  4. SPIRIVA HANDIHALER [Concomitant]
  5. WARFARIN [Concomitant]
  6. ATORVASTATIN [Concomitant]
  7. CHOLECALCIFEROL [Concomitant]
  8. CETIRIZINE [Concomitant]
  9. DONEPEZIL [Concomitant]
  10. PROBENECID [Concomitant]
  11. DOXAZOSIN [Concomitant]
  12. LUMIGAN [Concomitant]
  13. ALLOPURINOL [Concomitant]
  14. ACYCLOVIR                          /00587301/ [Concomitant]
  15. LISINOPRIL [Concomitant]
  16. FUROSEMIDE [Concomitant]

REACTIONS (1)
  - Pulmonary hypertension [Fatal]
